FAERS Safety Report 25112745 (Version 2)
Quarter: 2025Q1

REPORT INFORMATION
  Report Type: Spontaneous
  Country: US (occurrence: US)
  Receive Date: 20250324
  Receipt Date: 20250325
  Transmission Date: 20250409
  Serious: No
  Sender: UCB
  Company Number: US-UCBSA-2024065481

PATIENT
  Sex: Female
  Weight: 81.633 kg

DRUGS (2)
  1. BIMZELX [Suspect]
     Active Substance: BIMEKIZUMAB-BKZX
     Indication: Psoriasis
     Dosage: 320 MILLIGRAM, EV 4 WEEKS
     Route: 058
  2. ESSENTIAL OILS NOS [Concomitant]
     Indication: Product used for unknown indication

REACTIONS (2)
  - Cutaneous symptom [Unknown]
  - Product prescribing issue [Unknown]
